FAERS Safety Report 9300547 (Version 2)
Quarter: 2013Q2

REPORT INFORMATION
  Report Type: Report from Study
  Country: DE (occurrence: DE)
  Receive Date: 20130521
  Receipt Date: 20130527
  Transmission Date: 20140414
  Serious: Yes (Hospitalization)
  Sender: FDA-Public Use
  Company Number: PHHY2013DE041683

PATIENT
  Sex: Male

DRUGS (3)
  1. FTY 720 [Suspect]
     Indication: MULTIPLE SCLEROSIS
     Dosage: 0.5 MG, QD
     Route: 048
     Dates: start: 20110912
  2. L-THYROXIN [Concomitant]
     Dosage: 100 UG, DAILY
     Dates: start: 19890101
  3. MICARDIS [Concomitant]
     Dosage: 80 MG, DAILY
     Dates: start: 20110813

REACTIONS (3)
  - Seminoma [Recovered/Resolved]
  - Testicular swelling [Unknown]
  - Testicular pain [Unknown]
